FAERS Safety Report 4367721-0 (Version None)
Quarter: 2004Q2

REPORT INFORMATION
  Report Type: 
  Country: None (occurrence: None)
  Receive Date: 20040526
  Receipt Date: 20030929
  Transmission Date: 20050107
  Serious: Yes (Hospitalization, Other)
  Sender: FDA-Public Use
  Company Number: USA030948547

PATIENT
  Age: 68 Year
  Sex: Male

DRUGS (2)
  1. ZYPREXA [Suspect]
     Indication: MAJOR DEPRESSION
     Dosage: 10 MG
  2. CELEXA [Concomitant]

REACTIONS (1)
  - BLOOD GLUCOSE INCREASED [None]
